FAERS Safety Report 4409283-5 (Version None)
Quarter: 2004Q3

REPORT INFORMATION
  Report Type: 
  Country: None (occurrence: None)
  Receive Date: 20040728
  Receipt Date: 20040720
  Transmission Date: 20050211
  Serious: Yes (Life-Threatening, Hospitalization, Disabling)
  Sender: FDA-Public Use
  Company Number: US-MERCK-0407USA01641

PATIENT
  Age: 76 Year
  Sex: Female

DRUGS (3)
  1. [THERAPY UNSPECIFIED] [Concomitant]
     Route: 065
  2. HORMONES (UNSPECIFIED) [Concomitant]
     Route: 065
  3. VIOXX [Suspect]
     Indication: ARTHRITIS
     Route: 048

REACTIONS (3)
  - OEDEMA PERIPHERAL [None]
  - PULMONARY EMBOLISM [None]
  - THROMBOSIS [None]
